FAERS Safety Report 11417584 (Version 1)
Quarter: 2015Q3

REPORT INFORMATION
  Report Type: Spontaneous
  Country: US (occurrence: US)
  Receive Date: 20150825
  Receipt Date: 20150825
  Transmission Date: 20151125
  Serious: No
  Sender: FDA-Public Use
  Company Number: US-TARO-2014TAR00593

PATIENT
  Age: 74 Year
  Sex: Female
  Weight: 79.37 kg

DRUGS (8)
  1. METOPROLOL [Concomitant]
     Active Substance: METOPROLOL
     Dosage: 25 MG, 2X/DAY
  2. CLOBETASOL PROPIONATE OINTMENT USP 0.05% [Suspect]
     Active Substance: CLOBETASOL PROPIONATE
     Dosage: UNK, 2X/DAY
     Route: 061
     Dates: start: 20130901
  3. VITAMIN A [Concomitant]
     Active Substance: VITAMIN A
     Dosage: 8000 UNK, 1X/DAY
  4. EVENING PRIMROSE OIL [Concomitant]
     Active Substance: EVENING PRIMROSE OIL
     Dosage: 1000 UNK, 1X/DAY
  5. CLOBETASOL PROPIONATE OINTMENT USP 0.05% [Suspect]
     Active Substance: CLOBETASOL PROPIONATE
     Indication: LICHEN PLANUS
     Dosage: UNK UNK, 2X/DAY
     Route: 061
     Dates: start: 201205, end: 20130617
  6. SIMVASTATIN. [Concomitant]
     Active Substance: SIMVASTATIN
     Dosage: 20 MG, 1X/DAY
  7. MULTI-VITAMIN [Concomitant]
     Active Substance: .ALPHA.-TOCOPHEROL ACETATE, DL-\ASCORBIC ACID\CYANOCOBALAMIN\FLUORIDE ION\FOLIC ACID\NIACIN\PYRIDOXINE\RIBOFLAVIN\THIAMINE\VITAMIN A\VITAMIN D
     Dosage: UNK, 1X/DAY
  8. CALCIUM + D3 [Concomitant]
     Active Substance: CALCIUM\CHOLECALCIFEROL
     Dosage: 600 UNK, 2X/DAY

REACTIONS (7)
  - Localised infection [Recovered/Resolved]
  - Lichen planus [Recovered/Resolved]
  - Gingival swelling [Not Recovered/Not Resolved]
  - Skin atrophy [Recovered/Resolved]
  - Skin ulcer [Recovered/Resolved]
  - Skin discolouration [Not Recovered/Not Resolved]
  - Off label use [Not Recovered/Not Resolved]

NARRATIVE: CASE EVENT DATE: 201205
